FAERS Safety Report 4868290-9 (Version None)
Quarter: 2005Q4

REPORT INFORMATION
  Report Type: 
  Country: None (occurrence: None)
  Receive Date: 20051229
  Receipt Date: 20050908
  Transmission Date: 20060501
  Serious: Yes (Hospitalization, Disabling)
  Sender: FDA-Public Use
  Company Number: US-MERCK-0509USA01053

PATIENT
  Age: 54 Year
  Sex: Male
  Weight: 91 kg

DRUGS (7)
  1. VIOXX [Suspect]
     Indication: ARTHRALGIA
     Route: 048
     Dates: start: 19990501, end: 20040930
  2. PREVACID [Concomitant]
     Route: 065
  3. LIPITOR [Concomitant]
     Route: 065
  4. LORATADINE [Concomitant]
     Route: 065
  5. CELEBREX [Concomitant]
     Route: 048
     Dates: start: 20040301, end: 20040501
  6. CELEBREX [Concomitant]
     Route: 048
     Dates: start: 20041101, end: 20050101
  7. IBUPROFEN [Concomitant]
     Route: 065

REACTIONS (9)
  - ARTHRALGIA [None]
  - CHEST PAIN [None]
  - CORONARY ARTERY DISEASE [None]
  - DEPRESSION [None]
  - HYPERTENSION [None]
  - JOINT INJURY [None]
  - LIMB INJURY [None]
  - MYOCARDIAL INFARCTION [None]
  - PANIC DISORDER [None]
